FAERS Safety Report 8829394 (Version 3)
Quarter: 2012Q4

REPORT INFORMATION
  Report Type: 
  Country: US (occurrence: US)
  Receive Date: 20121008
  Receipt Date: 20121112
  Transmission Date: 20130627
  Serious: Yes (Other)
  Sender: FDA-Public Use
  Company Number: US-ABBOTT-12P-163-0990858-00

PATIENT
  Sex: Male
  Weight: 112.59 kg

DRUGS (7)
  1. ANDROGEL [Suspect]
     Indication: BLOOD TESTOSTERONE DECREASED
     Route: 061
     Dates: start: 20111013, end: 20120801
  2. ANDROGEL [Suspect]
     Indication: BLOOD TESTOSTERONE DECREASED
     Dosage: 2 pumps daily
     Route: 061
  3. TESTOSTERONE CYPIONATE [Suspect]
     Indication: PRODUCT USED FOR UNKNOWN INDICATION
     Dates: start: 201207
  4. GLIPIZIDE [Concomitant]
     Indication: DIABETES MELLITUS
     Dosage: 10 mg daily
     Dates: start: 2009
  5. LISINOPRIL [Concomitant]
     Indication: HYPERTENSION
     Dosage: 10 mg daily
     Dates: start: 2009
  6. HYTRIN [Concomitant]
     Indication: PRODUCT USED FOR UNKNOWN INDICATION
     Dosage: 10 mg daily
     Dates: start: 2009
  7. ASPIRIN [Concomitant]
     Indication: PRODUCT USED FOR UNKNOWN INDICATION
     Dosage: 81 mg daily
     Dates: start: 2001

REACTIONS (4)
  - Breast cancer [Unknown]
  - Breast mass [Unknown]
  - Disease progression [Unknown]
  - Mastectomy [Unknown]
